FAERS Safety Report 25257315 (Version 1)
Quarter: 2025Q2

REPORT INFORMATION
  Report Type: Report from Study
  Country: ES (occurrence: ES)
  Receive Date: 20250430
  Receipt Date: 20250430
  Transmission Date: 20250717
  Serious: Yes (Other)
  Sender: EMD SERONO INC
  Company Number: ES-Merck Healthcare KGaA-2025020459

PATIENT
  Age: 59 Year
  Sex: Female

DRUGS (16)
  1. CLADRIBINE [Suspect]
     Active Substance: CLADRIBINE
     Indication: Relapsing multiple sclerosis
  2. CLADRIBINE [Suspect]
     Active Substance: CLADRIBINE
  3. CLADRIBINE [Suspect]
     Active Substance: CLADRIBINE
  4. CLADRIBINE [Suspect]
     Active Substance: CLADRIBINE
  5. CHOLECALCIFEROL [Concomitant]
     Active Substance: CHOLECALCIFEROL
     Indication: Prophylaxis
     Dates: start: 20190930, end: 20220412
  6. CLONAZEPAM [Concomitant]
     Active Substance: CLONAZEPAM
     Indication: Muscle spasticity
     Dates: start: 20201101
  7. ESLICARBAZEPINE [Concomitant]
     Active Substance: ESLICARBAZEPINE
     Indication: Paraesthesia
     Dates: start: 20201005
  8. AMITRIPTYLINE [Concomitant]
     Active Substance: AMITRIPTYLINE
     Indication: Tension headache
     Dates: start: 20201001
  9. AMLODIPINE [Concomitant]
     Active Substance: AMLODIPINE BESYLATE
     Indication: Tension headache
     Dates: start: 20210415, end: 20210514
  10. DALFAMPRIDINE [Concomitant]
     Active Substance: DALFAMPRIDINE
     Indication: Gait disturbance
     Dates: start: 20200120, end: 20210514
  11. PFIZER-BIONTECH COVID-19 VACCINE [Concomitant]
     Active Substance: TOZINAMERAN
     Indication: Immunisation
     Dates: start: 20210520, end: 20210520
  12. LISINOPRIL [Concomitant]
     Active Substance: LISINOPRIL
     Indication: Headache
     Dates: start: 20211116, end: 20240819
  13. TERIPARATIDE [Concomitant]
     Active Substance: TERIPARATIDE
     Indication: Back pain
     Dates: start: 20220414, end: 20240819
  14. CALCIUM [Concomitant]
     Active Substance: CALCIUM
     Indication: Back pain
     Dosage: 1000/880 IU
     Dates: start: 20220412, end: 20240819
  15. MIRABEGRON [Concomitant]
     Active Substance: MIRABEGRON
     Indication: Urinary tract disorder
     Dates: start: 20220404
  16. CALCIFEDIOL [Concomitant]
     Active Substance: CALCIFEDIOL
     Indication: Vitamin D deficiency

REACTIONS (1)
  - Uterine cancer [Not Recovered/Not Resolved]

NARRATIVE: CASE EVENT DATE: 20241230
